FAERS Safety Report 8576950-1 (Version None)
Quarter: 2012Q3

REPORT INFORMATION
  Report Type: 
  Country: None (occurrence: None)
  Receive Date: 20120807
  Receipt Date: 20120730
  Transmission Date: 20120928
  Serious: Yes (Other)
  Sender: FDA-Public Use
  Company Number: PHHY2012BR066958

PATIENT
  Sex: Female
  Weight: 103 kg

DRUGS (5)
  1. FORMOTEROL FUMARATE [Suspect]
     Indication: BRONCHITIS
     Dosage: 1 DF (12/400 UG), IN THE MORNING AND AT NIGHT
  2. ACETYLCYSTEINE [Suspect]
     Indication: BRONCHITIS
     Dosage: 600 MG, ONE TIME AT NIGHT OR IN THE MORNING
  3. DIOVAN HCT [Suspect]
     Indication: HYPERTENSION
     Dosage: 1 DF (320/25 MG), IN THE MORNING
  4. EYE DROPS [Suspect]
     Indication: GLAUCOMA
     Dosage: 2 % (0.5), 1 DRP IN THE MORNING AND AT NIGHT
  5. OMEPRAZOLE [Suspect]
     Indication: GASTRIC DISORDER
     Dosage: 20 MG, ONE IN THE MORNING

REACTIONS (7)
  - BLOOD PRESSURE INADEQUATELY CONTROLLED [None]
  - ANGLE CLOSURE GLAUCOMA [None]
  - OBESITY [None]
  - GAIT DISTURBANCE [None]
  - BRONCHITIS CHRONIC [None]
  - BONE DISORDER [None]
  - KYPHOSIS [None]
